FAERS Safety Report 13241655 (Version 1)
Quarter: 2017Q1

REPORT INFORMATION
  Report Type: Spontaneous
  Country: FR (occurrence: FR)
  Receive Date: 20170216
  Receipt Date: 20170216
  Transmission Date: 20170428
  Serious: Yes (Hospitalization)
  Sender: FDA-Public Use
  Company Number: FR-GUERBET LLC-1063205

PATIENT
  Age: 59 Year
  Sex: Female
  Weight: 64 kg

DRUGS (9)
  1. OPTIRAY [Suspect]
     Active Substance: IOVERSOL
     Indication: COMPUTERISED TOMOGRAM
     Route: 042
     Dates: start: 20150429, end: 20150429
  2. NIFEDIPINE. [Concomitant]
     Active Substance: NIFEDIPINE
  3. HYDROCHLOROTHIAZIDE, CANDESARTAN CILEXETIL [Concomitant]
  4. CANDESARTAN CILEXETIL. [Concomitant]
     Active Substance: CANDESARTAN CILEXETIL
  5. PRAVASTATIN. [Concomitant]
     Active Substance: PRAVASTATIN
  6. CLOXACILLIN SODIUM [Concomitant]
     Active Substance: CLOXACILLIN SODIUM
  7. ADVIL [Concomitant]
     Active Substance: IBUPROFEN
  8. DIOSMECTITE [Concomitant]
     Active Substance: MONTMORILLONITE
  9. TROPHIGIL [Concomitant]
     Active Substance: ESTRIOL

REACTIONS (11)
  - Rash pustular [Recovered/Resolved]
  - Purpura [Recovered/Resolved]
  - Hepatitis [Recovered/Resolved]
  - Face oedema [Recovered/Resolved]
  - Eosinophilia [Recovered/Resolved]
  - Pyrexia [Recovered/Resolved]
  - Vulval oedema [Recovered/Resolved]
  - Drug reaction with eosinophilia and systemic symptoms [Recovered/Resolved]
  - Rash maculo-papular [Recovered/Resolved]
  - Rash pruritic [Recovered/Resolved]
  - Blood pressure decreased [Recovered/Resolved]

NARRATIVE: CASE EVENT DATE: 20150505
